FAERS Safety Report 16401546 (Version 1)
Quarter: 2019Q2

REPORT INFORMATION
  Report Type: Spontaneous
  Country: US (occurrence: US)
  Receive Date: 20190606
  Receipt Date: 20190606
  Transmission Date: 20190711
  Serious: No
  Sender: FDA-Public Use
  Company Number: US-ARRAY-2019-05597

PATIENT

DRUGS (4)
  1. MEKTOVI [Suspect]
     Active Substance: BINIMETINIB
     Dosage: UNK
  2. BRAFTOVI [Suspect]
     Active Substance: ENCORAFENIB
     Dosage: UNK
  3. BRAFTOVI [Suspect]
     Active Substance: ENCORAFENIB
     Indication: MALIGNANT MELANOMA
     Dosage: 450 MG, QD
     Route: 048
     Dates: start: 201810, end: 20190104
  4. MEKTOVI [Suspect]
     Active Substance: BINIMETINIB
     Indication: MALIGNANT MELANOMA
     Dosage: 45 MG, BID
     Route: 048
     Dates: start: 201810, end: 20190104

REACTIONS (10)
  - Frequent bowel movements [Unknown]
  - Asthenia [Unknown]
  - Chills [Unknown]
  - Abdominal pain upper [Unknown]
  - Wound abscess [Unknown]
  - Decreased appetite [Unknown]
  - Hyperhidrosis [Unknown]
  - Insomnia [Unknown]
  - Drug intolerance [Unknown]
  - Pyrexia [Unknown]
